FAERS Safety Report 17871366 (Version 1)
Quarter: 2020Q2

REPORT INFORMATION
  Report Type: Spontaneous
  Country: PH (occurrence: PH)
  Receive Date: 20200608
  Receipt Date: 20200608
  Transmission Date: 20200714
  Serious: Yes (Hospitalization, Other)
  Sender: FDA-Public Use
  Company Number: PH-SA-2020SA143921

PATIENT

DRUGS (1)
  1. SEVELAMER SALT NOT SPECIFIED [Suspect]
     Active Substance: SEVELAMER
     Dosage: UNK

REACTIONS (6)
  - Proctalgia [Recovering/Resolving]
  - Rectal ulcer [Recovering/Resolving]
  - Lower gastrointestinal haemorrhage [Recovered/Resolved]
  - Crystal deposit intestine [Unknown]
  - Haematochezia [Recovered/Resolved]
  - Faeces discoloured [Recovered/Resolved]
